FAERS Safety Report 12631915 (Version 2)
Quarter: 2016Q3

REPORT INFORMATION
  Report Type: Spontaneous
  Country: US (occurrence: US)
  Receive Date: 20160808
  Receipt Date: 20160808
  Transmission Date: 20161109
  Serious: No
  Sender: FDA-Public Use
  Company Number: US-BEH-2016061412

PATIENT
  Sex: Male
  Weight: 20 kg

DRUGS (8)
  1. FISH OIL [Concomitant]
     Active Substance: FISH OIL
  2. LIDOCAINE. [Concomitant]
     Active Substance: LIDOCAINE
  3. EPIPEN [Concomitant]
     Active Substance: EPINEPHRINE
  4. HIZENTRA [Suspect]
     Active Substance: HUMAN IMMUNOGLOBULIN G
     Indication: HYPOGAMMAGLOBULINAEMIA
     Route: 058
  5. HIZENTRA [Suspect]
     Active Substance: HUMAN IMMUNOGLOBULIN G
     Indication: CHROMOSOMAL DELETION
     Route: 058
     Dates: start: 20160118
  6. HIZENTRA [Suspect]
     Active Substance: HUMAN IMMUNOGLOBULIN G
     Indication: INFECTION
     Route: 058
  7. DIPHENHYDRAMINE. [Concomitant]
     Active Substance: DIPHENHYDRAMINE
  8. DEXMETHYLPHENIDATE [Concomitant]
     Active Substance: DEXMETHYLPHENIDATE HYDROCHLORIDE

REACTIONS (2)
  - Administration site extravasation [Unknown]
  - Administration site swelling [Unknown]
